FAERS Safety Report 8226334-0 (Version None)
Quarter: 2012Q1

REPORT INFORMATION
  Report Type: 
  Country: None (occurrence: None)
  Receive Date: 20120321
  Receipt Date: 20120312
  Transmission Date: 20120608
  Serious: Yes (Hospitalization)
  Sender: FDA-Public Use
  Company Number: DE-ROCHE-1048673

PATIENT
  Age: 45 Year
  Sex: Female

DRUGS (1)
  1. ZELBORAF [Suspect]
     Indication: MALIGNANT MELANOMA
     Dates: start: 20110227, end: 20120309

REACTIONS (6)
  - PROTEINURIA [None]
  - BLOOD CREATINE PHOSPHOKINASE INCREASED [None]
  - ARTHRALGIA [None]
  - ACUTE FEBRILE NEUTROPHILIC DERMATOSIS [None]
  - SINUS TACHYCARDIA [None]
  - RHEUMATIC FEVER [None]
